FAERS Safety Report 9780576 (Version 2)
Quarter: 2014Q1

REPORT INFORMATION
  Report Type: Spontaneous
  Country: JP (occurrence: JP)
  Receive Date: 20131224
  Receipt Date: 20140129
  Transmission Date: 20141002
  Serious: Yes (Hospitalization)
  Sender: FDA-Public Use
  Company Number: JP-ROCHE-1322500

PATIENT
  Age: 62 Year
  Sex: Male

DRUGS (1)
  1. CAPECITABINE [Suspect]
     Indication: COLORECTAL ADENOCARCINOMA
     Route: 048

REACTIONS (2)
  - Leukoencephalopathy [Recovered/Resolved]
  - Cardiomyopathy [Recovered/Resolved]
